FAERS Safety Report 7555947-4 (Version None)
Quarter: 2011Q2

REPORT INFORMATION
  Report Type: 
  Country: None (occurrence: None)
  Receive Date: 20110618
  Receipt Date: 20110120
  Transmission Date: 20111010
  Serious: Yes (Hospitalization, Other)
  Sender: FDA-Public Use
  Company Number: US-BAYER-201037407NA

PATIENT
  Age: 22 Year
  Sex: Female
  Weight: 96.16 kg

DRUGS (2)
  1. IBUPROFEN (ADVIL) [Concomitant]
  2. YAZ [Suspect]
     Indication: CONTRACEPTION
     Dosage: UNK
     Route: 048
     Dates: start: 20080114, end: 20090113

REACTIONS (6)
  - PAIN [None]
  - SCAR [None]
  - CHOLELITHIASIS [None]
  - CHOLESTEROSIS [None]
  - EMOTIONAL DISTRESS [None]
  - CHOLECYSTITIS CHRONIC [None]
